FAERS Safety Report 4536881-0 (Version None)
Quarter: 2004Q4

REPORT INFORMATION
  Report Type: 
  Country: None (occurrence: None)
  Receive Date: 20041223
  Receipt Date: 20041217
  Transmission Date: 20050328
  Serious: Yes (Hospitalization)
  Sender: FDA-Public Use
  Company Number: FR-GLAXOSMITHKLINE-B0362092A

PATIENT
  Age: 43 Year
  Sex: Female
  Weight: 160 kg

DRUGS (4)
  1. DEROXAT [Suspect]
     Indication: DEPRESSION
     Dosage: 20MG PER DAY
     Route: 048
     Dates: start: 20040315, end: 20040819
  2. URBANYL [Suspect]
     Dosage: 1UNIT AT NIGHT
     Route: 048
     Dates: start: 20040315, end: 20040819
  3. MYSOLINE [Suspect]
     Dosage: 125MG TWICE PER DAY
     Route: 048
     Dates: start: 20040315, end: 20040819
  4. SEGLOR [Suspect]
     Dosage: 5MG TWICE PER DAY
     Route: 048
     Dates: start: 20040315, end: 20040819

REACTIONS (5)
  - ABDOMINAL PAIN [None]
  - COLITIS [None]
  - DIARRHOEA [None]
  - FAECAL OCCULT BLOOD POSITIVE [None]
  - WEIGHT DECREASED [None]
